FAERS Safety Report 4504508-X (Version None)
Quarter: 2004Q4

REPORT INFORMATION
  Report Type: 
  Country: None (occurrence: None)
  Receive Date: 20041116
  Receipt Date: 20041013
  Transmission Date: 20050328
  Serious: Yes (Other)
  Sender: FDA-Public Use
  Company Number: 2004-DE-05603DE

PATIENT
  Age: 75 Year
  Sex: Male

DRUGS (6)
  1. MIRAPEX [Suspect]
     Dosage: PO
     Route: 048
     Dates: start: 20010118
  2. SINEMET [Suspect]
     Dates: start: 20040118
  3. K-DUR KEY CORPORATION [Concomitant]
  4. LASIX [Concomitant]
  5. SYNTHROID [Concomitant]
  6. XALATAN [Concomitant]

REACTIONS (3)
  - DELUSION [None]
  - MEDICATION ERROR [None]
  - PNEUMONIA [None]
